FAERS Safety Report 11600635 (Version 1)
Quarter: 2015Q4

REPORT INFORMATION
  Report Type: Spontaneous
  Country: US (occurrence: US)
  Receive Date: 20151006
  Receipt Date: 20151006
  Transmission Date: 20160304
  Serious: No
  Sender: FDA-Public Use
  Company Number: US-AMGEN-USASP2014091683

PATIENT
  Age: 70 Year
  Sex: Female

DRUGS (5)
  1. FIORICET [Concomitant]
     Active Substance: ACETAMINOPHEN\BUTALBITAL\CAFFEINE
  2. IMITREX [Concomitant]
     Active Substance: SUMATRIPTAN\SUMATRIPTAN SUCCINATE
  3. PROLIA [Suspect]
     Active Substance: DENOSUMAB
     Indication: OSTEOPOROSIS POSTMENOPAUSAL
     Dosage: UNK
     Route: 065
     Dates: start: 20140718
  4. VICODIN [Concomitant]
     Active Substance: ACETAMINOPHEN\HYDROCODONE BITARTRATE
     Dosage: EVERY 6 HOURS AS NEEDED
  5. PRILOSEC [Concomitant]
     Active Substance: OMEPRAZOLE MAGNESIUM
     Dosage: 20 MG, BID

REACTIONS (7)
  - Groin pain [Unknown]
  - Pain in extremity [Unknown]
  - Arthralgia [Unknown]
  - Skin exfoliation [Unknown]
  - Dry skin [Unknown]
  - Mobility decreased [Unknown]
  - Erythema [Unknown]

NARRATIVE: CASE EVENT DATE: 2014
